FAERS Safety Report 4307519-2 (Version None)
Quarter: 2004Q1

REPORT INFORMATION
  Report Type: 
  Country: None (occurrence: None)
  Receive Date: 20040226
  Receipt Date: 20040211
  Transmission Date: 20041129
  Serious: Yes (Life-Threatening, Hospitalization)
  Sender: FDA-Public Use
  Company Number: UK065138

PATIENT
  Age: 58 Year
  Sex: Male
  Weight: 80 kg

DRUGS (2)
  1. ARANESP [Suspect]
     Indication: DIALYSIS
     Dosage: 80 MCG, 1 IN 2 WEEKS, IV
     Route: 042
     Dates: start: 20010720
  2. IRON DEXTRAN [Concomitant]

REACTIONS (3)
  - APLASIA [None]
  - GASTRIC HAEMORRHAGE [None]
  - PANCYTOPENIA [None]
